FAERS Safety Report 26019792 (Version 1)
Quarter: 2025Q4

REPORT INFORMATION
  Report Type: Spontaneous
  Country: US (occurrence: US)
  Receive Date: 20251110
  Receipt Date: 20251110
  Transmission Date: 20260118
  Serious: No
  Sender: GALPHARM INTERNATIONAL
  Company Number: US-PERRIGO-24US010789

PATIENT
  Age: 100 Year
  Sex: Male
  Weight: 68.027 kg

DRUGS (23)
  1. POLYETHYLENE GLYCOL 3350 [Suspect]
     Active Substance: POLYETHYLENE GLYCOL 3350
     Indication: Constipation
     Dosage: 17 G, QD
     Route: 048
     Dates: start: 20241115
  2. DICLOFENAC SODIUM [Suspect]
     Active Substance: DICLOFENAC SODIUM
     Indication: Compression fracture
     Dosage: 2G, QPM
     Route: 061
     Dates: start: 20241114, end: 20241116
  3. DICLOFENAC SODIUM [Suspect]
     Active Substance: DICLOFENAC SODIUM
     Indication: Arthralgia
  4. APIXABAN [Concomitant]
     Active Substance: APIXABAN
     Indication: Pulmonary embolism
     Dosage: 2.5MG BID
     Route: 065
     Dates: start: 202307
  5. ENTRESTO [Concomitant]
     Active Substance: SACUBITRIL\VALSARTAN
     Indication: Cardiac failure congestive
     Dosage: 26MG TAB (1/2 TABLET BID)
     Route: 065
     Dates: start: 2021
  6. LASIX [Concomitant]
     Active Substance: FUROSEMIDE
     Indication: Fluid retention
     Dosage: 10MG QAM
     Route: 065
     Dates: start: 202109
  7. LASIX [Concomitant]
     Active Substance: FUROSEMIDE
     Indication: Cardiac failure congestive
  8. JARDIANCE [Concomitant]
     Active Substance: EMPAGLIFLOZIN
     Indication: Glucose tolerance impaired
     Dosage: 10MG QAM
     Route: 065
     Dates: start: 202109
  9. JARDIANCE [Concomitant]
     Active Substance: EMPAGLIFLOZIN
     Indication: Cardiac failure congestive
  10. VITAMIN D3 [Concomitant]
     Active Substance: CHOLECALCIFEROL
     Indication: Supplementation therapy
     Dosage: 2000IU IN AM
     Route: 065
  11. ASCORBIC ACID [Concomitant]
     Active Substance: ASCORBIC ACID
     Indication: Supplementation therapy
     Dosage: 500MG QAM
     Route: 065
  12. MINERALS\VITAMINS [Concomitant]
     Active Substance: MINERALS\VITAMINS
     Indication: Macular degeneration
     Dosage: 2 BID
     Route: 065
     Dates: start: 2020
  13. UBIQUINOL [Concomitant]
     Active Substance: UBIQUINOL
     Indication: Supplementation therapy
     Dosage: AT LUNCHTIME
     Route: 065
  14. VITAMIN B12 [Concomitant]
     Active Substance: CYANOCOBALAMIN
     Indication: Supplementation therapy
     Dosage: 1200MCG SL
     Route: 065
  15. ZINC [Concomitant]
     Active Substance: ZINC
     Indication: Supplementation therapy
     Dosage: 50MG MWF
     Route: 065
     Dates: start: 2021
  16. TROSPIUM [Concomitant]
     Active Substance: TROSPIUM
     Indication: Nocturia
     Dosage: 20MG QHS
     Route: 065
  17. SPIRONOLACTONE [Concomitant]
     Active Substance: SPIRONOLACTONE
     Indication: Fluid retention
     Dosage: 25MG (1/2 TABLET) QHS
     Route: 065
     Dates: start: 202104
  18. SPIRONOLACTONE [Concomitant]
     Active Substance: SPIRONOLACTONE
     Indication: Cardiac failure congestive
  19. CALCIUM CARBONATE [Concomitant]
     Active Substance: CALCIUM CARBONATE
     Indication: Osteoporosis
     Dosage: BID
     Route: 065
     Dates: start: 202312
  20. SALONPAS (MENTHOL\METHYL SALICYLATE) [Concomitant]
     Active Substance: MENTHOL\METHYL SALICYLATE
     Indication: Pain
     Dosage: UNK
     Route: 065
     Dates: start: 20241118
  21. LIDOCAINE 4% MENTHOL 4% [Concomitant]
     Active Substance: LIDOCAINE\MENTHOL
     Indication: Pain
     Dosage: UNK
     Route: 065
     Dates: start: 202411, end: 202411
  22. DOCUSATE SODIUM [Concomitant]
     Active Substance: DOCUSATE SODIUM
     Indication: Constipation
     Dosage: UNK
     Route: 065
     Dates: start: 20241112
  23. FLEET ENEMA [Concomitant]
     Active Substance: SODIUM PHOSPHATE, DIBASIC\SODIUM PHOSPHATE, MONOBASIC
     Indication: Constipation
     Dosage: UNK, SINGLE
     Route: 054
     Dates: start: 202411, end: 202411

REACTIONS (1)
  - Chromaturia [Recovered/Resolved]

NARRATIVE: CASE EVENT DATE: 20241116
